FAERS Safety Report 10184817 (Version 1)
Quarter: 2014Q2

REPORT INFORMATION
  Report Type: Spontaneous
  Country: DE (occurrence: DE)
  Receive Date: 20140521
  Receipt Date: 20140521
  Transmission Date: 20141212
  Serious: Yes (Other)
  Sender: FDA-Public Use
  Company Number: DE-JNJFOC-20140505077

PATIENT
  Age: 17 Year
  Sex: Male

DRUGS (4)
  1. DOXORUBICIN [Suspect]
     Indication: OSTEOSARCOMA
     Route: 065
  2. IFOSFAMID [Suspect]
     Indication: OSTEOSARCOMA
     Route: 065
  3. VP-16 [Suspect]
     Indication: OSTEOSARCOMA
     Route: 065
  4. CDDP [Suspect]
     Indication: OSTEOSARCOMA
     Route: 065

REACTIONS (3)
  - Liver disorder [Unknown]
  - Enterocolitis [Unknown]
  - Off label use [Unknown]
